FAERS Safety Report 9416252 (Version 1)
Quarter: 2013Q3

REPORT INFORMATION
  Report Type: Spontaneous
  Country: US (occurrence: US)
  Receive Date: 20130724
  Receipt Date: 20130724
  Transmission Date: 20140515
  Serious: Yes (Other)
  Sender: FDA-Public Use
  Company Number: US-JNJFOC-20130707995

PATIENT
  Age: 72 Year
  Sex: Female
  Weight: 95.26 kg

DRUGS (2)
  1. ROGAINE FOR WOMEN [Suspect]
     Route: 061
  2. ROGAINE FOR WOMEN [Suspect]
     Indication: PRODUCT USED FOR UNKNOWN INDICATION
     Route: 061
     Dates: start: 199701, end: 2011

REACTIONS (1)
  - Skin cancer [Unknown]
